FAERS Safety Report 7919858-4 (Version None)
Quarter: 2011Q4

REPORT INFORMATION
  Report Type: 
  Country: None (occurrence: None)
  Receive Date: 20111117
  Receipt Date: 20111111
  Transmission Date: 20120403
  Serious: Yes (Hospitalization)
  Sender: FDA-Public Use
  Company Number: US-CELGENEUS-163-21880-11101952

PATIENT
  Sex: Male
  Weight: 95.794 kg

DRUGS (21)
  1. GABAPENTIN [Concomitant]
     Route: 065
  2. OMEPRAZOLE [Concomitant]
     Route: 065
  3. ALLOPURINOL [Concomitant]
     Route: 065
  4. VITAMIN B-12 [Concomitant]
     Route: 065
  5. LORAZEPAM [Concomitant]
     Route: 065
  6. LOVAZA [Concomitant]
     Route: 065
  7. VITAMIN-MINERAL COMPOUND TAB [Concomitant]
     Route: 065
  8. REVLIMID [Suspect]
     Indication: MULTIPLE MYELOMA
     Dosage: 15 MILLIGRAM
     Route: 048
     Dates: start: 20110314
  9. PANTOPRAZOLE [Concomitant]
     Route: 065
  10. METOPROLOL TARTRATE [Concomitant]
     Route: 065
  11. WARFARIN SODIUM [Concomitant]
     Route: 065
  12. DOXAZOSIN MESYLATE [Concomitant]
     Route: 065
  13. TEMAZEPAM [Concomitant]
     Route: 065
  14. OSTEO-BIFLEX [Concomitant]
     Route: 065
  15. AMITRIPTYLINE HCL [Concomitant]
     Route: 065
  16. OXYCODONE HCL [Concomitant]
     Route: 065
  17. VITAMIN B6 [Concomitant]
     Route: 065
  18. POLYETHYLENE [Concomitant]
     Route: 065
  19. FINASTERIDE [Concomitant]
     Route: 065
  20. VITAMIN D [Concomitant]
     Route: 065
  21. LOVAZA [Concomitant]
     Route: 065

REACTIONS (5)
  - LIVER DISORDER [None]
  - HYPOTENSION [None]
  - RENAL DISORDER [None]
  - MUSCULAR WEAKNESS [None]
  - PYREXIA [None]
